FAERS Safety Report 7266059-1 (Version None)
Quarter: 2011Q1

REPORT INFORMATION
  Report Type: 
  Country: None (occurrence: None)
  Receive Date: 20110131
  Receipt Date: 20100225
  Transmission Date: 20110831
  Serious: No
  Sender: FDA-Public Use
  Company Number: US-ABBOTT-10P-163-0628932-00

PATIENT
  Sex: Male

DRUGS (1)
  1. LUPRON DEPOT [Suspect]
     Indication: PRODUCT USED FOR UNKNOWN INDICATION

REACTIONS (12)
  - COGNITIVE DISORDER [None]
  - FATIGUE [None]
  - HEADACHE [None]
  - DEPRESSED MOOD [None]
  - HOT FLUSH [None]
  - WEIGHT INCREASED [None]
  - DISTURBANCE IN ATTENTION [None]
  - FEELING ABNORMAL [None]
  - APHASIA [None]
  - LOSS OF LIBIDO [None]
  - AFFECT LABILITY [None]
  - ASTHENIA [None]
